FAERS Safety Report 6521535-1 (Version None)
Quarter: 2009Q4

REPORT INFORMATION
  Report Type: 
  Country: None (occurrence: None)
  Receive Date: 20091230
  Receipt Date: 20091221
  Transmission Date: 20100525
  Serious: Yes (Hospitalization, Disabling)
  Sender: FDA-Public Use
  Company Number: BE-BRISTOL-MYERS SQUIBB COMPANY-14784573

PATIENT
  Sex: Male
  Weight: 49 kg

DRUGS (3)
  1. CETUXIMAB [Suspect]
     Indication: HEAD AND NECK CANCER
     Dosage: MOST RECENT INF ON 31AUG09 DISCONTINUED ON 7SEP09
     Route: 042
     Dates: start: 20090727, end: 20090831
  2. CISPLATIN [Suspect]
     Indication: HEAD AND NECK CANCER
     Dosage: MOST RECENT INF ON 17AUG09 ALSO INTERRUPTED
     Route: 042
     Dates: start: 20090727, end: 20090817
  3. FLUOROURACIL [Suspect]
     Indication: HEAD AND NECK CANCER
     Dosage: MOST RECENT INF ON 17AUG09 ALSO INTERRUPTED
     Route: 042
     Dates: start: 20090727, end: 20090820

REACTIONS (1)
  - TONGUE NECROSIS [None]
